FAERS Safety Report 8976062 (Version 1)
Quarter: 2012Q4

REPORT INFORMATION
  Report Type: 
  Country: DE (occurrence: CO)
  Receive Date: 20121220
  Receipt Date: 20121220
  Transmission Date: 20130627
  Serious: Yes (Hospitalization)
  Sender: FDA-Public Use
  Company Number: DE-ACTELION-A-US2012-76653

PATIENT
  Age: 53 Year
  Sex: Female

DRUGS (1)
  1. VENTAVIS BAYER SCHERING [Suspect]
     Indication: PULMONARY ARTERIAL HYPERTENSION
     Dosage: UNK
     Route: 055
     Dates: start: 20120628, end: 20120628

REACTIONS (6)
  - Erythema [Recovered/Resolved]
  - Tachycardia [Recovered/Resolved]
  - Discomfort [Recovered/Resolved]
  - Vomiting [Recovered/Resolved]
  - Oedema [Recovered/Resolved]
  - Pruritus [Recovered/Resolved]
